FAERS Safety Report 11392088 (Version 1)
Quarter: 2015Q3

REPORT INFORMATION
  Report Type: Spontaneous
  Country: GB (occurrence: None)
  Receive Date: 20150814
  Receipt Date: 20150814
  Transmission Date: 20151125
  Serious: Yes (Other)
  Sender: FDA-Public Use
  Company Number: 2015RR-100768

PATIENT
  Age: 67 Year
  Sex: Female
  Weight: 63 kg

DRUGS (15)
  1. SYMBICORT (BUDESONIDE, FORMOTEROL FUMARATE DIHYDRATE) [Concomitant]
  2. AMLODIPINE [Concomitant]
     Active Substance: AMLODIPINE BESYLATE
  3. COLECALCIFEROL (COLECALCIFEROL) [Concomitant]
  4. BENDROFLUMETHIAZIDE (BENDROFLUMETHIAZIDE) [Concomitant]
     Active Substance: BENDROFLUMETHIAZIDE
  5. IBUPROFEN (IBUPROFEN) [Concomitant]
     Active Substance: IBUPROFEN
  6. SALBUTAMOL (SALBUTAMOL) [Concomitant]
     Active Substance: ALBUTEROL
  7. LOSARTAN (LOSARTAN) [Concomitant]
     Active Substance: LOSARTAN
  8. EZETIMIBE (EZETIMIBE) (TABLET) [Concomitant]
     Active Substance: EZETIMIBE
  9. PARACETAMOL (PARACETAMOL) [Concomitant]
     Active Substance: ACETAMINOPHEN
  10. AQUEOUS CREAM (AQUEOUS CREAM) [Concomitant]
  11. BECLOMETASONE (BECLOMETASONE) [Concomitant]
  12. ROSUVASTATIN (ROSUVASTATIN) [Concomitant]
     Active Substance: ROSUVASTATIN
  13. CITALOPRAM (CITALOPRAM) UNKNOWN [Suspect]
     Active Substance: CITALOPRAM HYDROBROMIDE
     Indication: PRODUCT USED FOR UNKNOWN INDICATION
     Route: 048
     Dates: start: 20150420
  14. ADCAL (CALCIUM CARBONATE) [Concomitant]
     Active Substance: CALCIUM CARBONATE
  15. BETAMETHASONE VALERATE (BETAMETHASONE VALERATE) [Concomitant]

REACTIONS (7)
  - Drug intolerance [None]
  - Dizziness [None]
  - Throat tightness [None]
  - Prescribed overdose [None]
  - Dysphagia [None]
  - Chills [None]
  - Chest discomfort [None]

NARRATIVE: CASE EVENT DATE: 20150615
